FAERS Safety Report 8101460-5 (Version None)
Quarter: 2012Q1

REPORT INFORMATION
  Report Type: 
  Country: None (occurrence: None)
  Receive Date: 20120129
  Receipt Date: 20111010
  Transmission Date: 20120608
  Serious: Yes (Hospitalization)
  Sender: FDA-Public Use
  Company Number: US-ABBOTT-11P-163-0862967-00

PATIENT
  Age: 60 Year
  Sex: Female

DRUGS (11)
  1. HUMIRA [Suspect]
     Indication: CROHN'S DISEASE
     Dates: start: 20110730, end: 20110912
  2. LAMICTAL [Concomitant]
     Indication: CONVULSION
  3. MECLIZINE [Concomitant]
     Indication: DIZZINESS
  4. MERCAPTOPURINE [Concomitant]
     Indication: ANXIETY
  5. GLYBURIDE [Concomitant]
     Indication: GASTRIC ULCER
  6. LOSARTAN POTASSIUM [Concomitant]
     Indication: HYPERTENSION
  7. HYOSCYAMINE [Concomitant]
     Indication: GASTROINTESTINAL DISORDER
  8. HYDROCHLOROTHIAZIDE [Concomitant]
     Indication: HYPERTENSION
  9. NEXIUM [Concomitant]
     Indication: GASTROOESOPHAGEAL REFLUX DISEASE
  10. MECLIZINE [Concomitant]
     Indication: VOMITING
  11. MECLIZINE [Concomitant]
     Indication: NAUSEA

REACTIONS (2)
  - MIGRAINE [None]
  - ABDOMINAL PAIN [None]
